FAERS Safety Report 8827988 (Version 1)
Quarter: 2012Q4

REPORT INFORMATION
  Report Type: 
  Country: US (occurrence: US)
  Receive Date: 20121005
  Receipt Date: 20121005
  Transmission Date: 20130627
  Serious: Yes (Hospitalization)
  Sender: FDA-Public Use
  Company Number: US-BAYER-2012-101693

PATIENT
  Age: 24 Year
  Sex: Female

DRUGS (3)
  1. YASMIN [Suspect]
     Indication: ACNE
     Dosage: UNK
     Dates: start: 20110623, end: 20110627
  2. GENTAK [Concomitant]
     Dosage: 3 mg/gm
  3. TRAMADOL HYDROCHLORIDE [Concomitant]
     Dosage: 50 mg, UNK

REACTIONS (2)
  - Deep vein thrombosis [None]
  - Thrombophlebitis superficial [Recovered/Resolved]
